FAERS Safety Report 6375677-4 (Version None)
Quarter: 2009Q3

REPORT INFORMATION
  Report Type: 
  Country: None (occurrence: None)
  Receive Date: 20090921
  Receipt Date: 20090921
  Transmission Date: 20100115
  Serious: Yes (Hospitalization)
  Sender: FDA-Public Use
  Company Number: None

PATIENT
  Sex: Female
  Weight: 52.8441 kg

DRUGS (2)
  1. SORAFENIB [Suspect]
     Indication: PANCREATIC CARCINOMA
     Dosage: 400 MG PO BID
     Dates: start: 20090909, end: 20090913
  2. ERLOTINB [Suspect]
     Indication: PANCREATIC CARCINOMA
     Dosage: 150 MG PO DAILY
     Route: 048
     Dates: start: 20090909, end: 20090913

REACTIONS (2)
  - ABDOMINAL PAIN [None]
  - NAUSEA [None]
